FAERS Safety Report 5829580-6 (Version None)
Quarter: 2008Q3

REPORT INFORMATION
  Report Type: 
  Country: None (occurrence: None)
  Receive Date: 20080729
  Receipt Date: 20080723
  Transmission Date: 20090109
  Serious: Yes (Hospitalization)
  Sender: FDA-Public Use
  Company Number: 2008SP012067

PATIENT
  Age: 45 Year
  Sex: Female
  Weight: 83.9154 kg

DRUGS (3)
  1. PEG-INTRON [Suspect]
     Indication: HEPATITIS C
     Dosage: SC
     Route: 058
     Dates: start: 20080411, end: 20080601
  2. PEG-INTRON [Suspect]
     Indication: HEPATITIS C
     Dosage: SC
     Route: 058
     Dates: start: 20080601, end: 20080618
  3. RIBAVIRIN [Suspect]
     Indication: HEPATITIS C
     Dosage: PO
     Route: 048
     Dates: start: 20080411, end: 20080618

REACTIONS (13)
  - ALCOHOL USE [None]
  - ALOPECIA [None]
  - CATHETER SITE PAIN [None]
  - DECREASED APPETITE [None]
  - DIZZINESS [None]
  - FALL [None]
  - HEART RATE DECREASED [None]
  - INSOMNIA [None]
  - MALAISE [None]
  - PRESYNCOPE [None]
  - PYREXIA [None]
  - SYNCOPE [None]
  - WEIGHT DECREASED [None]
